FAERS Safety Report 11358481 (Version 1)
Quarter: 2015Q3

REPORT INFORMATION
  Report Type: Spontaneous
  Country: US (occurrence: US)
  Receive Date: 20150803
  Receipt Date: 20150803
  Transmission Date: 20151125
  Serious: Yes (Hospitalization, Other)
  Sender: FDA-Public Use
  Company Number: US-ELI_LILLY_AND_COMPANY-US_0501109641

PATIENT
  Sex: Male
  Weight: 114.74 kg

DRUGS (20)
  1. ZYPREXA [Suspect]
     Active Substance: OLANZAPINE
     Dosage: 20 MG, UNK
     Dates: start: 20041227, end: 2005
  2. RISPERIDONE. [Concomitant]
     Active Substance: RISPERIDONE
     Dates: start: 200305, end: 200311
  3. PREDNISONE. [Concomitant]
     Active Substance: PREDNISONE
     Dates: start: 200005, end: 200102
  4. PREDNISONE. [Concomitant]
     Active Substance: PREDNISONE
     Dates: end: 200303
  5. ZOLOFT                                  /USA/ [Concomitant]
     Dosage: UNK, UNK
     Dates: start: 200210, end: 20040603
  6. ZOLOFT                                  /USA/ [Concomitant]
     Dates: start: 20040702, end: 200409
  7. ZYPREXA [Suspect]
     Active Substance: OLANZAPINE
     Indication: SCHIZOPHRENIA
     Dosage: 10 MG, UNKNOWN
     Dates: start: 20000803, end: 20010826
  8. THORAZINE [Concomitant]
     Active Substance: CHLORPROMAZINE
     Dates: start: 20050810
  9. ZYPREXA [Suspect]
     Active Substance: OLANZAPINE
     Dosage: 20 MG, UNK
     Dates: start: 20021210, end: 20041127
  10. ZYPREXA [Suspect]
     Active Substance: OLANZAPINE
     Dates: end: 20060619
  11. PERPHENAZINE. [Concomitant]
     Active Substance: PERPHENAZINE
     Dates: start: 200210, end: 200305
  12. PREDNISONE. [Concomitant]
     Active Substance: PREDNISONE
     Dates: start: 1998
  13. PREDNISONE. [Concomitant]
     Active Substance: PREDNISONE
     Dates: start: 200009
  14. ZYPREXA [Suspect]
     Active Substance: OLANZAPINE
     Dosage: 10 MG, UNK
     Dates: start: 20021021, end: 20021115
  15. SEROQUEL                                /UNK/ [Concomitant]
     Dates: start: 2005
  16. ZOLOFT                                  /USA/ [Concomitant]
     Dates: start: 200410, end: 200508
  17. RISPERIDONE. [Concomitant]
     Active Substance: RISPERIDONE
     Dates: start: 200209
  18. RISPERIDONE. [Concomitant]
     Active Substance: RISPERIDONE
     Dates: start: 200306, end: 200307
  19. PREDNISONE. [Concomitant]
     Active Substance: PREDNISONE
     Dates: start: 199902, end: 200004
  20. ABILIFY [Concomitant]
     Active Substance: ARIPIPRAZOLE
     Dates: start: 2005

REACTIONS (8)
  - Diabetes mellitus [Not Recovered/Not Resolved]
  - Hyperglycaemia [Unknown]
  - Blood cholesterol increased [Unknown]
  - Hypertension [Unknown]
  - Depression [Not Recovered/Not Resolved]
  - Metabolic disorder [Unknown]
  - Coma [Unknown]
  - Weight decreased [Unknown]

NARRATIVE: CASE EVENT DATE: 2001
